FAERS Safety Report 6075228-8 (Version None)
Quarter: 2009Q1

REPORT INFORMATION
  Report Type: 
  Country: None (occurrence: None)
  Receive Date: 20090212
  Receipt Date: 20090209
  Transmission Date: 20090719
  Serious: Yes (Hospitalization)
  Sender: FDA-Public Use
  Company Number: DE-AVENTIS-200310366DE

PATIENT
  Sex: Female

DRUGS (7)
  1. TAXOTERE [Suspect]
     Route: 042
     Dates: start: 20021016, end: 20030129
  2. DOXORUBICIN HCL [Suspect]
     Route: 042
     Dates: start: 20021016, end: 20030129
  3. CYCLOPHOSPHAMIDE [Suspect]
     Route: 042
     Dates: start: 20021016, end: 20030129
  4. CLEXANE [Concomitant]
     Dates: start: 20030206
  5. NEUPOGEN [Concomitant]
     Dates: start: 20030206
  6. CIPROBAY                           /00697202/ [Concomitant]
     Dates: start: 20030206
  7. ACETYLCYSTEINE [Concomitant]
     Dates: start: 20030206

REACTIONS (6)
  - COUGH [None]
  - HERPES ZOSTER [None]
  - HYPOTENSION [None]
  - NAUSEA [None]
  - PYREXIA [None]
  - TACHYCARDIA [None]
